FAERS Safety Report 22306821 (Version 1)
Quarter: 2023Q2

REPORT INFORMATION
  Report Type: Spontaneous
  Country: IN (occurrence: IN)
  Receive Date: 20230511
  Receipt Date: 20230511
  Transmission Date: 20230722
  Serious: Yes (Hospitalization)
  Sender: FDA-Public Use
  Company Number: IN-STRIDES ARCOLAB LIMITED-2023SP006878

PATIENT
  Age: 32 Year
  Sex: Female

DRUGS (1)
  1. METRONIDAZOLE [Suspect]
     Active Substance: METRONIDAZOLE
     Indication: Liver abscess
     Dosage: UNK; TABLET
     Route: 065

REACTIONS (4)
  - Lupus-like syndrome [Unknown]
  - Nephritis [Unknown]
  - Mucocutaneous haemorrhage [Unknown]
  - Thrombocytopenia [Unknown]
